FAERS Safety Report 15033510 (Version 2)
Quarter: 2018Q4

REPORT INFORMATION
  Report Type: Report from Study
  Country: US (occurrence: US)
  Receive Date: 20180619
  Receipt Date: 20181011
  Transmission Date: 20190204
  Serious: Yes (Other)
  Sender: FDA-Public Use
  Company Number: US-MALLINCKRODT-T201802569

PATIENT
  Age: 50 Year
  Sex: Male
  Weight: 134 kg

DRUGS (1)
  1. REPOSITORY CORTICOTROPIN INJECTION [Suspect]
     Active Substance: CORTICOTROPIN
     Indication: FOCAL SEGMENTAL GLOMERULOSCLEROSIS
     Dosage: 80 UNITS, TWO TIMES A WEEK
     Route: 058
     Dates: start: 20130701, end: 20140201

REACTIONS (2)
  - Drug ineffective [Unknown]
  - Transplant failure [Unknown]

NARRATIVE: CASE EVENT DATE: 20150529
